FAERS Safety Report 19506226 (Version 1)
Quarter: 2021Q3

REPORT INFORMATION
  Report Type: Spontaneous
  Country: CN (occurrence: CN)
  Receive Date: 20210708
  Receipt Date: 20210708
  Transmission Date: 20211014
  Serious: Yes (Other)
  Sender: FDA-Public Use
  Company Number: CN-ROCHE-2861727

PATIENT
  Age: 82 Year
  Sex: Male
  Weight: 72 kg

DRUGS (1)
  1. ACTILYSE [Suspect]
     Active Substance: ALTEPLASE
     Indication: CEREBRAL ARTERY EMBOLISM
     Dosage: INTRA PUMP INJECTION
     Route: 050
     Dates: start: 20210529, end: 20210529

REACTIONS (3)
  - Vasogenic cerebral oedema [Recovered/Resolved]
  - Tongue haemorrhage [Recovered/Resolved]
  - Off label use [Unknown]

NARRATIVE: CASE EVENT DATE: 20210529
